FAERS Safety Report 7734421-6 (Version None)
Quarter: 2011Q3

REPORT INFORMATION
  Report Type: 
  Country: None (occurrence: None)
  Receive Date: 20110817
  Receipt Date: 20110531
  Transmission Date: 20111222
  Serious: Yes (Other)
  Sender: FDA-Public Use
  Company Number: 20108426

PATIENT
  Sex: Female

DRUGS (3)
  1. FENTANYL [Concomitant]
  2. LIORESAL [Suspect]
     Indication: MUSCLE SPASTICITY
     Dosage: MCG, DAILY, INTRATHECAL
     Route: 037
  3. MORPHINE [Concomitant]

REACTIONS (2)
  - MALAISE [None]
  - FATIGUE [None]
